FAERS Safety Report 9097419 (Version 3)
Quarter: 2013Q2

REPORT INFORMATION
  Report Type: Spontaneous
  Country: FI (occurrence: FI)
  Receive Date: 20130212
  Receipt Date: 20130423
  Transmission Date: 20140414
  Serious: Yes (Hospitalization)
  Sender: FDA-Public Use
  Company Number: FI-ELI_LILLY_AND_COMPANY-FI201302000746

PATIENT
  Sex: Female

DRUGS (5)
  1. FORSTEO [Suspect]
     Indication: OSTEOPOROSIS
     Dosage: 20 UG, QD
     Route: 058
     Dates: start: 20120914
  2. CORTISONE [Concomitant]
  3. FURESIS [Concomitant]
     Indication: POLYURIA
  4. KLEXANE [Concomitant]
  5. DAXON [Concomitant]

REACTIONS (2)
  - Urinary tract infection [Unknown]
  - Gallbladder disorder [Not Recovered/Not Resolved]
